FAERS Safety Report 4567437-1 (Version None)
Quarter: 2005Q1

REPORT INFORMATION
  Report Type: 
  Country: None (occurrence: None)
  Receive Date: 20050127
  Receipt Date: 20050119
  Transmission Date: 20050727
  Serious: Yes (Other)
  Sender: FDA-Public Use
  Company Number: GBWYE356920JAN05

PATIENT
  Age: 54 Year
  Sex: Female

DRUGS (11)
  1. TAZOCIN (PIPERACILLIN/TAZOBACTAM, INJECTION) [Suspect]
     Indication: PANCREATITIS
     Dosage: 2.5 G
     Route: 042
     Dates: start: 20050101
  2. ROCURONIUM BROMIDE (ROCURONIUM BORMIDE) [Suspect]
     Indication: NEUROMUSCULAR BLOCKADE
     Dosage: 60 MG
     Route: 042
     Dates: start: 20050105, end: 20050105
  3. ASPIRIN [Concomitant]
  4. OMEPRAZOLE [Concomitant]
  5. LEVOTHYROXINE SODIUM [Concomitant]
  6. PRAVASTATIN [Concomitant]
  7. NICORANDIL (NICORANDIL) [Concomitant]
  8. RAMIPRIL [Concomitant]
  9. DILTIAZEM HYDROCHLORIDE [Concomitant]
  10. BISOPROLOL FUMARATE [Concomitant]
  11. ENOXAPARIN SODIUM [Concomitant]

REACTIONS (2)
  - ANAESTHETIC COMPLICATION NEUROLOGICAL [None]
  - DRUG INTERACTION [None]
